FAERS Safety Report 6042971-6 (Version None)
Quarter: 2009Q1

REPORT INFORMATION
  Report Type: 
  Country: None (occurrence: None)
  Receive Date: 20090119
  Receipt Date: 20090109
  Transmission Date: 20090719
  Serious: Yes (Hospitalization, Other)
  Sender: FDA-Public Use
  Company Number: US-ELI_LILLY_AND_COMPANY-US200812004228

PATIENT
  Age: 32 Year
  Sex: Male

DRUGS (5)
  1. PROZAC [Suspect]
     Dosage: UNK, UNKNOWN
     Route: 065
  2. HERBAL PREPARATION [Concomitant]
     Dosage: UNK, UNKNOWN
     Route: 065
  3. HUMIRA [Concomitant]
     Dosage: UNK, UNKNOWN
     Route: 065
  4. ASACOL [Concomitant]
     Dosage: UNK, UNKNOWN
     Route: 065
  5. MERCAPTOPURINE [Concomitant]
     Dosage: UNK, UNKNOWN
     Route: 065

REACTIONS (5)
  - CONVULSION [None]
  - DRUG INTERACTION [None]
  - HYPOTENSION [None]
  - PNEUMONIA ASPIRATION [None]
  - PYREXIA [None]
